FAERS Safety Report 5750699-2 (Version None)
Quarter: 2008Q2

REPORT INFORMATION
  Report Type: 
  Country: None (occurrence: None)
  Receive Date: 20080523
  Receipt Date: 20080523
  Transmission Date: 20081010
  Serious: Yes (Hospitalization)
  Sender: FDA-Public Use
  Company Number: None

PATIENT
  Sex: Female
  Weight: 102.27 kg

DRUGS (9)
  1. CISPLATIN [Suspect]
     Dosage: 50 MG
  2. DOXORUBICIN HYDROCHLORIDE [Suspect]
     Dosage: 45 MG
  3. G-CSF (FILGRASTIM, AMGEN) [Suspect]
     Dosage: 5 MCG
  4. TAXOL [Suspect]
     Dosage: 160 MG
  5. GLYBURIDE [Concomitant]
  6. LEVEMIR [Concomitant]
  7. LISINOPRIL [Concomitant]
  8. LOPRESSOR [Concomitant]
  9. PAXIL [Concomitant]

REACTIONS (1)
  - FEBRILE NEUTROPENIA [None]
